FAERS Safety Report 10952049 (Version 1)
Quarter: 2015Q1

REPORT INFORMATION
  Report Type: Spontaneous
  Country: US (occurrence: None)
  Receive Date: 20150324
  Receipt Date: 20150324
  Transmission Date: 20150721
  Serious: Yes (Death)
  Sender: FDA-Public Use
  Company Number: None

PATIENT
  Sex: Male

DRUGS (18)
  1. EPIPEN [Concomitant]
     Active Substance: EPINEPHRINE
  2. PROCHLORPERAZINE. [Concomitant]
     Active Substance: PROCHLORPERAZINE
  3. DILTIAZEM HYDROCHLORIDE EXTENDED RELEASE [Concomitant]
     Active Substance: DILTIAZEM HYDROCHLORIDE
  4. GUIATUSS AC SYP [Concomitant]
  5. VITAMIN D [Concomitant]
     Active Substance: CHOLECALCIFEROL
  6. PREDNISONE. [Concomitant]
     Active Substance: PREDNISONE
  7. OMEORAZOLE [Concomitant]
  8. PENTOXIFYLLI [Concomitant]
  9. VITAMIN E [Concomitant]
     Active Substance: .ALPHA.-TOCOPHEROL
  10. ASPIRIN. [Concomitant]
     Active Substance: ASPIRIN
  11. AMBIEN [Concomitant]
     Active Substance: ZOLPIDEM TARTRATE
  12. ENTECAVIR. [Suspect]
     Active Substance: ENTECAVIR
     Indication: LUNG NEOPLASM MALIGNANT
     Route: 048
     Dates: start: 201407, end: 201503
  13. CAPTOPRIL. [Concomitant]
     Active Substance: CAPTOPRIL
  14. FOLIC ACID. [Concomitant]
     Active Substance: FOLIC ACID
  15. PROAIR HFA AER [Concomitant]
  16. DILTIAZEM [Concomitant]
     Active Substance: DILTIAZEM
  17. ONDANSETRON [Concomitant]
     Active Substance: ONDANSETRON
  18. BARACLUDE [Concomitant]
     Active Substance: ENTECAVIR

REACTIONS (2)
  - Disease complication [None]
  - Pneumonia [None]
